FAERS Safety Report 6788289-5 (Version None)
Quarter: 2010Q2

REPORT INFORMATION
  Report Type: 
  Country: None (occurrence: None)
  Receive Date: 20100623
  Receipt Date: 20080218
  Transmission Date: 20101027
  Serious: No
  Sender: FDA-Public Use
  Company Number: US-PFIZER INC-2008015040

PATIENT
  Sex: Female
  Weight: 95 kg

DRUGS (4)
  1. XALATAN [Suspect]
  2. XAL-EASE [Suspect]
  3. NO PRODUCT FOUND [Suspect]
  4. METFORMIN HCL [Concomitant]
     Indication: DIABETES MELLITUS
     Route: 048
     Dates: start: 20080101

REACTIONS (3)
  - BURNING SENSATION [None]
  - ERYTHEMA [None]
  - EXPIRED DRUG ADMINISTERED [None]
